FAERS Safety Report 14153978 (Version 1)
Quarter: 2017Q4

REPORT INFORMATION
  Report Type: Spontaneous
  Country: US (occurrence: US)
  Receive Date: 20171102
  Receipt Date: 20171102
  Transmission Date: 20180321
  Serious: Yes (Other)
  Sender: FDA-Public Use
  Company Number: US-TEVA-822010USA

PATIENT
  Sex: Female

DRUGS (1)
  1. CARBIDOPA AND LEVODOPA [Suspect]
     Active Substance: CARBIDOPA\LEVODOPA
     Dosage: 1 DF= 25 MG CARBIDOPA AND 100 MG LEVODOPA
     Route: 065

REACTIONS (7)
  - Laceration [Unknown]
  - Haemorrhage [Unknown]
  - Peripheral swelling [Unknown]
  - Product container seal issue [Unknown]
  - Erythema [Unknown]
  - Pain [Unknown]
  - Injury [Unknown]

NARRATIVE: CASE EVENT DATE: 201710
